FAERS Safety Report 8870331 (Version 2)
Quarter: 2012Q4

REPORT INFORMATION
  Report Type: 
  Country: CA (occurrence: CA)
  Receive Date: 20121026
  Receipt Date: 20121128
  Transmission Date: 20130627
  Serious: Yes (Disabling)
  Sender: FDA-Public Use
  Company Number: CA-ASTRAZENECA-2012SE79167

PATIENT
  Age: 54 Year
  Sex: Female

DRUGS (6)
  1. NEXIUM [Suspect]
     Indication: HELICOBACTER GASTRITIS
     Route: 048
     Dates: start: 20120719, end: 201208
  2. NEXIUM [Suspect]
     Indication: HELICOBACTER GASTRITIS
     Route: 048
     Dates: start: 20120919
  3. NEXIUM [Suspect]
     Indication: HELICOBACTER GASTRITIS
     Route: 048
     Dates: start: 20121016
  4. AMOXICILLIN [Suspect]
     Indication: HELICOBACTER GASTRITIS
     Route: 065
     Dates: start: 20120919
  5. AMOXICILLIN\CLARITHROMYCIN\LANSOPRAZOLE [Suspect]
     Indication: HELICOBACTER GASTRITIS
     Route: 065
     Dates: start: 20120725
  6. LEVOFLOXACIN [Suspect]
     Indication: HELICOBACTER GASTRITIS
     Route: 065
     Dates: start: 20120919

REACTIONS (5)
  - Muscle spasms [Not Recovered/Not Resolved]
  - Pain in extremity [Not Recovered/Not Resolved]
  - Hypoaesthesia [Not Recovered/Not Resolved]
  - Joint swelling [Not Recovered/Not Resolved]
  - Intentional drug misuse [Unknown]
